FAERS Safety Report 6548387-8 (Version None)
Quarter: 2010Q1

REPORT INFORMATION
  Report Type: 
  Country: None (occurrence: None)
  Receive Date: 20100124
  Receipt Date: 20090610
  Transmission Date: 20100710
  Serious: No
  Sender: FDA-Public Use
  Company Number: US-ALLERGAN-0907921US

PATIENT
  Age: 74 Year
  Sex: Female

DRUGS (5)
  1. RESTASIS [Suspect]
     Indication: DRY EYE
     Dosage: UNK, BID
     Route: 047
     Dates: end: 20090607
  2. RESTASIS [Suspect]
     Dosage: UNK, QD
     Route: 047
     Dates: start: 20090610
  3. OPTIVE [Concomitant]
     Indication: DRY EYE
     Dosage: UNK, PRN
     Route: 047
  4. SYNTHROID [Concomitant]
     Indication: HYPOTHYROIDISM
  5. ZOLOFT [Concomitant]

REACTIONS (6)
  - EYE DISCHARGE [None]
  - EYE IRRITATION [None]
  - EYE PRURITUS [None]
  - FOREIGN BODY SENSATION IN EYES [None]
  - PHOTOPHOBIA [None]
  - VISION BLURRED [None]
